FAERS Safety Report 9028829 (Version 1)
Quarter: 2013Q1

REPORT INFORMATION
  Report Type: Other
  Country: US (occurrence: US)
  Receive Date: 20130124
  Receipt Date: 20130124
  Transmission Date: 20140127
  Serious: Yes (Hospitalization)
  Sender: FDA-Public Use
  Company Number: US-BRISTOL-MYERS SQUIBB COMPANY-17288093

PATIENT
  Age: 40 Year
  Sex: Female

DRUGS (2)
  1. EFAVIRENZ [Suspect]
     Indication: ANTIRETROVIRAL THERAPY
  2. TENOFOVIR [Suspect]
     Indication: ANTIRETROVIRAL THERAPY

REACTIONS (3)
  - Sepsis [Unknown]
  - Lactic acidosis [Recovered/Resolved]
  - Multi-organ failure [Unknown]
